FAERS Safety Report 18490476 (Version 2)
Quarter: 2020Q4

REPORT INFORMATION
  Report Type: Spontaneous
  Country: US (occurrence: US)
  Receive Date: 20201111
  Receipt Date: 20201127
  Transmission Date: 20210114
  Serious: No
  Sender: FDA-Public Use
  Company Number: US-UNITED THERAPEUTICS-UNT-2020-017496

PATIENT
  Age: 46 Year
  Sex: Female
  Weight: 147.39 kg

DRUGS (3)
  1. ADCIRCA [Concomitant]
     Active Substance: TADALAFIL
     Indication: PULMONARY ARTERIAL HYPERTENSION
     Dosage: UNK
     Route: 065
  2. REMODULIN [Suspect]
     Active Substance: TREPROSTINIL
     Indication: PULMONARY ARTERIAL HYPERTENSION
     Dosage: UNK, CONTINUING
     Route: 058
     Dates: start: 20191120
  3. REMODULIN [Suspect]
     Active Substance: TREPROSTINIL
     Dosage: 0.085 ?G/KG, CONTINUING
     Route: 058

REACTIONS (5)
  - Vomiting [Unknown]
  - Infusion site haemorrhage [Unknown]
  - Infusion site discharge [Unknown]
  - Infusion site erythema [Unknown]
  - Malaise [Unknown]

NARRATIVE: CASE EVENT DATE: 20201108
